FAERS Safety Report 4847453-2 (Version None)
Quarter: 2005Q4

REPORT INFORMATION
  Report Type: 
  Country: None (occurrence: None)
  Receive Date: 20051202
  Receipt Date: 20051118
  Transmission Date: 20060501
  Serious: Yes (Hospitalization)
  Sender: FDA-Public Use
  Company Number: 219804

PATIENT
  Age: 57 Year
  Sex: Female

DRUGS (5)
  1. BEVACIZUMAB OR PLACEBO (BEVACIZUMAB OR PLACEBO) PWDR + SOLVENT, INFUSI [Suspect]
     Indication: NON-SMALL CELL LUNG CANCER
     Dosage: 15 MG/KG, Q3W, INTRAVENOUS
     Route: 042
     Dates: start: 20050923
  2. CISPLATIN [Suspect]
     Indication: NON-SMALL CELL LUNG CANCER
     Dosage: 80 MG/M2, Q3W, INTRAVENOUS
     Route: 042
     Dates: start: 20050923
  3. GEMCITABINE (GEMICTABINE HYDROCHLORIDE) [Suspect]
     Indication: NON-SMALL CELL LUNG CANCER
     Dosage: 1250 MG/M2, DAY 1+8/Q3W, INTRAVENOUS
     Route: 042
     Dates: start: 20050923
  4. DICLOFENAC SODIUM [Concomitant]
  5. THEOPHYLLINE [Concomitant]

REACTIONS (1)
  - THROMBOCYTHAEMIA [None]
